FAERS Safety Report 12076931 (Version 2)
Quarter: 2016Q1

REPORT INFORMATION
  Report Type: Spontaneous
  Country: FR (occurrence: FR)
  Receive Date: 20160215
  Receipt Date: 20160316
  Transmission Date: 20160526
  Serious: Yes (Other)
  Sender: FDA-Public Use
  Company Number: FR-JNJFOC-20160211146

PATIENT
  Age: 35 Year
  Sex: Female
  Weight: 73 kg

DRUGS (6)
  1. TRAMADOL/PARACETAMOL [Suspect]
     Active Substance: ACETAMINOPHEN\TRAMADOL
     Indication: ABDOMINAL PAIN UPPER
     Route: 048
     Dates: start: 20151205, end: 20151207
  2. TARDYFERON [Concomitant]
     Active Substance: FERROUS SULFATE\FOLIC ACID
     Indication: PRODUCT USED FOR UNKNOWN INDICATION
     Route: 065
     Dates: start: 201601
  3. TRAMADOL/PARACETAMOL [Suspect]
     Active Substance: ACETAMINOPHEN\TRAMADOL
     Indication: UTERINE PAIN
     Route: 048
     Dates: start: 20151205, end: 20151207
  4. TRAMADOL/PARACETAMOL [Suspect]
     Active Substance: ACETAMINOPHEN\TRAMADOL
     Indication: UTERINE PAIN
     Route: 048
     Dates: start: 20151207, end: 20151208
  5. TRAMADOL/PARACETAMOL [Suspect]
     Active Substance: ACETAMINOPHEN\TRAMADOL
     Indication: ABDOMINAL PAIN UPPER
     Route: 048
     Dates: start: 20151207, end: 20151208
  6. PHLOROGLUCINOL W/TRIMETHYLPHLOROGLUCINOL [Concomitant]
     Indication: ABDOMINAL PAIN
     Route: 065
     Dates: start: 20151205, end: 201601

REACTIONS (11)
  - Amnesia [Not Recovered/Not Resolved]
  - Headache [Recovered/Resolved]
  - Tremor [Not Recovered/Not Resolved]
  - Dizziness [Recovered/Resolved]
  - Diarrhoea [Recovered/Resolved]
  - Self esteem decreased [Recovered/Resolved]
  - Paranoia [Recovered/Resolved]
  - Nervousness [Recovering/Resolving]
  - Abdominal pain [Recovered/Resolved]
  - Crying [Recovered/Resolved]
  - Nightmare [Recovered/Resolved]

NARRATIVE: CASE EVENT DATE: 20151207
